FAERS Safety Report 6754026-3 (Version None)
Quarter: 2010Q2

REPORT INFORMATION
  Report Type: 
  Country: None (occurrence: None)
  Receive Date: 20100603
  Receipt Date: 20100526
  Transmission Date: 20101027
  Serious: Yes (Other)
  Sender: FDA-Public Use
  Company Number: B0658623A

PATIENT
  Sex: Male

DRUGS (3)
  1. AUGMENTIN '125' [Suspect]
     Indication: LUNG INFECTION
     Route: 065
  2. LAMICTAL [Concomitant]
     Route: 065
  3. KEPPRA [Concomitant]
     Route: 065

REACTIONS (1)
  - EPILEPSY [None]
